FAERS Safety Report 16947154 (Version 1)
Quarter: 2019Q4

REPORT INFORMATION
  Report Type: Spontaneous
  Country: KR (occurrence: KR)
  Receive Date: 20191022
  Receipt Date: 20191022
  Transmission Date: 20200122
  Serious: Yes (Other)
  Sender: FDA-Public Use
  Company Number: KR-GUERBET-KR-20190046

PATIENT
  Age: 53 Year
  Sex: Male

DRUGS (2)
  1. LIPIODOL [Suspect]
     Active Substance: ETHIODIZED OIL
     Indication: GASTRIC VARICEAL INJECTION
     Dosage: 1 ML 3 TIMES
  2. BUTYL 2-CYANOACRYLATE [Concomitant]
     Indication: GASTRIC VARICEAL INJECTION
     Dosage: 1 ML 3 TIMES

REACTIONS (4)
  - Portal vein embolism [Recovered/Resolved]
  - Ascites [Unknown]
  - Hepatic encephalopathy [Unknown]
  - Product use in unapproved indication [Unknown]
